FAERS Safety Report 23193196 (Version 1)
Quarter: 2023Q4

REPORT INFORMATION
  Report Type: Spontaneous
  Country: US (occurrence: None)
  Receive Date: 20231116
  Receipt Date: 20231116
  Transmission Date: 20240109
  Serious: Yes (Disabling, Other)
  Sender: FDA-Public Use
  Company Number: None

PATIENT
  Age: 72 Year
  Sex: Female
  Weight: 45.45 kg

DRUGS (10)
  1. DULOXETINE [Suspect]
     Active Substance: DULOXETINE
     Indication: Depression
     Dosage: OTHER QUANTITY : 1 CAPSULE(S);?FREQUENCY : DAILY;?
     Route: 048
     Dates: start: 20221201
  2. LISINOPRIL [Concomitant]
     Active Substance: LISINOPRIL
  3. MELOXICAM [Concomitant]
     Active Substance: MELOXICAM
  4. DILITIAZINE (SP?) [Concomitant]
  5. LORAZEPAM [Concomitant]
     Active Substance: LORAZEPAM
  6. PROZAC [Concomitant]
     Active Substance: FLUOXETINE HYDROCHLORIDE
  7. ALMA POWDER + ALMA ROOT [Concomitant]
  8. OMEGA 3 [Concomitant]
     Active Substance: CAPSAICIN
  9. TYLENOL [Concomitant]
     Active Substance: ACETAMINOPHEN
  10. COENZYME Q10 [Concomitant]
     Active Substance: DIETARY SUPPLEMENT\UBIDECARENONE

REACTIONS (11)
  - Palpitations [None]
  - Gait disturbance [None]
  - Dizziness [None]
  - Weight decreased [None]
  - Serotonin syndrome [None]
  - Gastrointestinal haemorrhage [None]
  - Agitation [None]
  - Psychomotor hyperactivity [None]
  - Frustration tolerance decreased [None]
  - Suicidal ideation [None]
  - Cardiac disorder [None]
